FAERS Safety Report 8162218-4 (Version None)
Quarter: 2012Q1

REPORT INFORMATION
  Report Type: 
  Country: None (occurrence: None)
  Receive Date: 20120224
  Receipt Date: 20111012
  Transmission Date: 20120608
  Serious: No
  Sender: FDA-Public Use
  Company Number: US-BRISTOL-MYERS SQUIBB COMPANY-16118739

PATIENT
  Age: 66 Year
  Sex: Male

DRUGS (3)
  1. LANTUS [Suspect]
     Indication: TYPE 2 DIABETES MELLITUS
     Dosage: 2011:INCREASE TO 40 UNITS DAILY.PARENTRAL INJ SOLUN 100IU/ML
     Route: 058
  2. APIDRA [Suspect]
     Indication: TYPE 2 DIABETES MELLITUS
     Dosage: 2011: INCREASED TO 130 UNITS DAILY AT NIGHT ,PARENTRAL INJ SOLUN 100IU/ML
     Route: 058
  3. METFORMIN HCL [Suspect]
     Route: 065

REACTIONS (3)
  - BLOOD GLUCOSE DECREASED [None]
  - VISUAL IMPAIRMENT [None]
  - BLOOD GLUCOSE INCREASED [None]
